FAERS Safety Report 4484015-3 (Version None)
Quarter: 2004Q4

REPORT INFORMATION
  Report Type: 
  Country: None (occurrence: None)
  Receive Date: 20041021
  Receipt Date: 20041006
  Transmission Date: 20050328
  Serious: Yes (Death)
  Sender: FDA-Public Use
  Company Number: 2004AL000734

PATIENT
  Age: 60 Year

DRUGS (1)
  1. THEOPHYLLINE ELIXIR LIQUID [Suspect]
     Dosage: PO
     Route: 048

REACTIONS (2)
  - MEDICATION ERROR [None]
  - OVERDOSE [None]
